FAERS Safety Report 8773666 (Version 1)
Quarter: 2012Q4

REPORT INFORMATION
  Report Type: 
  Country: EG (occurrence: EG)
  Receive Date: 20120907
  Receipt Date: 20120907
  Transmission Date: 20130627
  Serious: Yes (Hospitalization, Other)
  Sender: FDA-Public Use
  Company Number: PHHY2012EG076596

PATIENT
  Age: 50 Year
  Sex: Female

DRUGS (11)
  1. TAREG [Suspect]
     Indication: HYPERTENSION
     Dosage: 1 tablet, QD
     Route: 048
     Dates: start: 20120228
  2. CONCOR 2.5 [Concomitant]
     Dosage: UNK UKN, UNK
  3. LIPITOR [Concomitant]
     Dosage: UNK UKN, UNK
  4. JUSPRIN [Concomitant]
     Dosage: UNK UKN, UNK
  5. VASTAREL [Concomitant]
     Dosage: UNK UKN, UNK
  6. INSULIN MIXTARD [Concomitant]
  7. LEGALON [Concomitant]
     Dosage: UNK UKN, UNK
  8. NEUROBION [Concomitant]
     Dosage: UNK UKN, UNK
  9. MONO MACK [Concomitant]
     Dosage: UNK UKN, UNK
  10. PLAVIX [Concomitant]
     Dosage: UNK UKN, UNK
  11. ADANCOR [Concomitant]
     Dosage: UNK UKN, UNK

REACTIONS (4)
  - Surgical failure [Recovered/Resolved]
  - Dyspnoea [Recovered/Resolved]
  - Feeling abnormal [Recovered/Resolved]
  - Chest discomfort [Recovered/Resolved]
